FAERS Safety Report 5644963-5 (Version None)
Quarter: 2008Q1

REPORT INFORMATION
  Report Type: 
  Country: None (occurrence: None)
  Receive Date: 20080229
  Receipt Date: 20071126
  Transmission Date: 20080703
  Serious: No
  Sender: FDA-Public Use
  Company Number: A0696095A

PATIENT
  Age: 28 Year
  Sex: Female

DRUGS (1)
  1. VALTREX [Suspect]
     Dosage: 2G TWICE PER DAY
     Route: 065
     Dates: start: 20071024, end: 20071024

REACTIONS (2)
  - PRURITUS [None]
  - URTICARIA [None]
